FAERS Safety Report 7009730-9 (Version None)
Quarter: 2010Q3

REPORT INFORMATION
  Report Type: 
  Country: None (occurrence: None)
  Receive Date: 20100903
  Receipt Date: 20100826
  Transmission Date: 20110219
  Serious: No
  Sender: FDA-Public Use
  Company Number: 2010-00657

PATIENT
  Sex: Female

DRUGS (2)
  1. ZICAM COLD REMEDY GEL SWABS [Suspect]
     Dosage: AS DIRECTED
     Dates: start: 20061001
  2. ZICAM COLD REMEDY GEL SWABS [Suspect]
     Dosage: AS DIRECTED
     Dates: start: 20090401

REACTIONS (3)
  - AGEUSIA [None]
  - ANOSMIA [None]
  - BURNING SENSATION [None]
